FAERS Safety Report 5140294-0 (Version None)
Quarter: 2006Q4

REPORT INFORMATION
  Report Type: 
  Country: None (occurrence: None)
  Receive Date: 20061031
  Receipt Date: 20060919
  Transmission Date: 20070319
  Serious: Yes (Hospitalization)
  Sender: FDA-Public Use
  Company Number: JP-JPN-A200603743

PATIENT
  Age: 58 Year
  Sex: Male
  Weight: 65 kg

DRUGS (6)
  1. VALTREX [Suspect]
     Indication: HERPES ZOSTER
     Dosage: 500MG TWICE PER DAY
     Route: 048
     Dates: start: 20060912, end: 20060916
  2. WARFARIN SODIUM [Concomitant]
     Indication: MITRAL VALVE REPLACEMENT
     Route: 048
  3. RENIVACE [Concomitant]
     Indication: HYPERTENSION
     Dosage: 1TAB PER DAY
     Route: 048
  4. TEPRENONE [Concomitant]
     Indication: GASTRITIS
     Dosage: 1CAP PER DAY
     Route: 048
  5. SUNRYTHM [Concomitant]
     Indication: ATRIAL FIBRILLATION
     Dosage: 4CAP PER DAY
     Route: 048
  6. LUPRAC [Concomitant]
     Dosage: 1TAB PER DAY
     Route: 048

REACTIONS (7)
  - BLOOD CREATININE INCREASED [None]
  - DECREASED APPETITE [None]
  - DEHYDRATION [None]
  - DIZZINESS [None]
  - HEADACHE [None]
  - NAUSEA [None]
  - RENAL FAILURE ACUTE [None]
